FAERS Safety Report 21161498 (Version 1)
Quarter: 2022Q3

REPORT INFORMATION
  Report Type: Spontaneous
  Country: IT (occurrence: IT)
  Receive Date: 20220802
  Receipt Date: 20220802
  Transmission Date: 20221027
  Serious: Yes (Other)
  Sender: FDA-Public Use
  Company Number: IT-ELI_LILLY_AND_COMPANY-IT202207009447

PATIENT
  Age: 50 Year
  Sex: Female
  Weight: 74 kg

DRUGS (5)
  1. TALTZ [Suspect]
     Active Substance: IXEKIZUMAB
     Indication: Psoriatic arthropathy
     Dosage: UNK UNK, UNKNOWN
     Route: 065
     Dates: start: 202111, end: 202202
  2. TALTZ [Suspect]
     Active Substance: IXEKIZUMAB
     Dosage: UNK UNK, UNKNOWN
     Route: 065
     Dates: start: 202206, end: 20220620
  3. SULFASALAZINE [Concomitant]
     Active Substance: SULFASALAZINE
     Indication: Product used for unknown indication
  4. VITAMIN C [Concomitant]
     Active Substance: ASCORBIC ACID
     Indication: Product used for unknown indication
  5. VITAMIN D NOS [Concomitant]
     Active Substance: VITAMIN D NOS
     Indication: Product used for unknown indication

REACTIONS (18)
  - Skin exfoliation [Not Recovered/Not Resolved]
  - Skin discharge [Not Recovered/Not Resolved]
  - Erythema [Not Recovered/Not Resolved]
  - Blister [Not Recovered/Not Resolved]
  - Scab [Not Recovered/Not Resolved]
  - Acne [Not Recovered/Not Resolved]
  - Alopecia [Not Recovered/Not Resolved]
  - Rash [Not Recovered/Not Resolved]
  - Rhinitis [Not Recovered/Not Resolved]
  - Eczema [Not Recovered/Not Resolved]
  - Pruritus [Unknown]
  - Ear discomfort [Recovering/Resolving]
  - Vulvovaginal pruritus [Unknown]
  - Cystitis [Recovered/Resolved]
  - Skin burning sensation [Unknown]
  - Dermatitis [Unknown]
  - Ocular hyperaemia [Unknown]
  - Leukoplakia oral [Recovered/Resolved]

NARRATIVE: CASE EVENT DATE: 20220217
